FAERS Safety Report 9012743 (Version 2)
Quarter: 2013Q2

REPORT INFORMATION
  Report Type: Spontaneous
  Country: US (occurrence: US)
  Receive Date: 20130114
  Receipt Date: 20130424
  Transmission Date: 20140414
  Serious: No
  Sender: FDA-Public Use
  Company Number: US-009507513-1301USA003942

PATIENT
  Age: 50 Year
  Sex: Female

DRUGS (4)
  1. NASONEX [Suspect]
     Indication: RHINITIS
     Route: 055
  2. ADDERALL TABLETS [Concomitant]
  3. DIAZEPAM [Concomitant]
  4. BOTOX [Concomitant]

REACTIONS (2)
  - Drug ineffective [Recovered/Resolved]
  - Incorrect storage of drug [Unknown]
